FAERS Safety Report 25166000 (Version 2)
Quarter: 2025Q2

REPORT INFORMATION
  Report Type: Report from Study
  Country: AU (occurrence: AU)
  Receive Date: 20250407
  Receipt Date: 20250417
  Transmission Date: 20250716
  Serious: Yes (Other)
  Sender: ABBVIE
  Company Number: AU-ABBVIE-6178334

PATIENT
  Age: 42 Year
  Sex: Male

DRUGS (1)
  1. HUMIRA [Suspect]
     Active Substance: ADALIMUMAB
     Indication: Rheumatoid arthritis
     Route: 058
     Dates: start: 20171105

REACTIONS (8)
  - Intervertebral disc protrusion [Unknown]
  - Neck surgery [Recovering/Resolving]
  - Skin laceration [Unknown]
  - Nail growth abnormal [Unknown]
  - Memory impairment [Unknown]
  - Rheumatoid arthritis [Unknown]
  - Rheumatoid arthritis [Recovered/Resolved]
  - Psoriatic arthropathy [Unknown]

NARRATIVE: CASE EVENT DATE: 20240101
